FAERS Safety Report 9741441 (Version 2)
Quarter: 2014Q1

REPORT INFORMATION
  Report Type: Spontaneous
  Country: FR (occurrence: FR)
  Receive Date: 20131209
  Receipt Date: 20140113
  Transmission Date: 20141002
  Serious: Yes (Hospitalization)
  Sender: FDA-Public Use
  Company Number: PHHY2013FR142947

PATIENT
  Age: 61 Year
  Sex: Female
  Weight: 68 kg

DRUGS (2)
  1. GLIVEC [Suspect]
     Indication: CHRONIC MYELOID LEUKAEMIA
     Dosage: 400 MG, QD
     Route: 048
     Dates: start: 20120418, end: 20131105
  2. AMOXICILLIN [Suspect]
     Dates: start: 201310, end: 201310

REACTIONS (2)
  - Hepatitis cholestatic [Recovered/Resolved]
  - Hepatitis [Recovered/Resolved]
